FAERS Safety Report 15477749 (Version 3)
Quarter: 2018Q4

REPORT INFORMATION
  Report Type: Report from Study
  Country: FR (occurrence: FR)
  Receive Date: 20181009
  Receipt Date: 20181016
  Transmission Date: 20190205
  Serious: Yes (Hospitalization)
  Sender: FDA-Public Use
  Company Number: FR-IPSEN BIOPHARMACEUTICALS, INC.-2018-14224

PATIENT
  Sex: Male
  Weight: 101 kg

DRUGS (6)
  1. CABOZANTINIB [Suspect]
     Active Substance: CABOZANTINIB
     Dosage: DAILY
     Route: 048
     Dates: start: 20180907, end: 20180910
  2. CABOZANTINIB [Suspect]
     Active Substance: CABOZANTINIB
     Route: 048
     Dates: start: 20181001
  3. CABOZANTINIB [Suspect]
     Active Substance: CABOZANTINIB
  4. CABOZANTINIB [Suspect]
     Active Substance: CABOZANTINIB
     Indication: RENAL CELL CARCINOMA
     Route: 048
     Dates: start: 20180730, end: 2018
  5. CABOZANTINIB [Suspect]
     Active Substance: CABOZANTINIB
     Route: 048
     Dates: start: 20180910, end: 20180914
  6. CABOZANTINIB [Suspect]
     Active Substance: CABOZANTINIB
     Route: 048
     Dates: start: 20180914, end: 20181001

REACTIONS (8)
  - Vomiting [Recovered/Resolved]
  - General physical health deterioration [Recovered/Resolved]
  - Epistaxis [Recovering/Resolving]
  - Hypoproteinaemia [Recovering/Resolving]
  - Skin exfoliation [Recovering/Resolving]
  - Blood pressure increased [Not Recovered/Not Resolved]
  - Gout [Recovered/Resolved]
  - Diarrhoea [Recovered/Resolved]

NARRATIVE: CASE EVENT DATE: 20180822
